FAERS Safety Report 5393852-2 (Version None)
Quarter: 2007Q3

REPORT INFORMATION
  Report Type: 
  Country: None (occurrence: None)
  Receive Date: 20070723
  Receipt Date: 20070717
  Transmission Date: 20080115
  Serious: Yes (Other)
  Sender: FDA-Public Use
  Company Number: A0664597A

PATIENT
  Age: 74 Year
  Sex: Female

DRUGS (8)
  1. ADVAIR DISKUS 100/50 [Suspect]
     Indication: ASTHMA
     Route: 055
     Dates: start: 20050101, end: 20061201
  2. ACTONEL [Concomitant]
  3. CALCIUM CHLORIDE [Concomitant]
  4. PREVACID [Concomitant]
  5. XANAX [Concomitant]
  6. WELLBUTRIN [Concomitant]
  7. UNSPECIFIED MEDICATION [Concomitant]
  8. SYNTHROID [Concomitant]

REACTIONS (2)
  - ASTHMA [None]
  - DYSPNOEA [None]
